FAERS Safety Report 13239225 (Version 2)
Quarter: 2017Q1

REPORT INFORMATION
  Report Type: Spontaneous
  Country: PE (occurrence: PE)
  Receive Date: 20170216
  Receipt Date: 20170227
  Transmission Date: 20170428
  Serious: Yes (Other)
  Sender: FDA-Public Use
  Company Number: PE-PFIZER INC-2017065039

PATIENT
  Age: 80 Year
  Sex: Female

DRUGS (3)
  1. XALATAN [Suspect]
     Active Substance: LATANOPROST
     Indication: GLAUCOMA
     Dosage: 2 GTT, 1X/DAY (1 DROP ON EACH EYE)
  2. ALPHAGAN P [Concomitant]
     Active Substance: BRIMONIDINE TARTRATE
     Dosage: 1 GTT, 4X/DAY
  3. AZOPT [Concomitant]
     Active Substance: BRINZOLAMIDE
     Dosage: 1 GTT, 4X/DAY

REACTIONS (4)
  - Deafness [Unknown]
  - Drug ineffective [Unknown]
  - Visual impairment [Unknown]
  - Blindness [Unknown]
